FAERS Safety Report 11089060 (Version 3)
Quarter: 2015Q4

REPORT INFORMATION
  Report Type: Spontaneous
  Country: JP (occurrence: JP)
  Receive Date: 20150505
  Receipt Date: 20151020
  Transmission Date: 20160304
  Serious: Yes (Hospitalization)
  Sender: FDA-Public Use
  Company Number: JP-ROCHE-1571847

PATIENT
  Age: 55 Year
  Sex: Female
  Weight: 61 kg

DRUGS (10)
  1. TAXOL [Concomitant]
     Active Substance: PACLITAXEL
     Indication: MALIGNANT PERITONEAL NEOPLASM
     Dosage: DOSE INTERVAL: 3-4 WEEKS?COMPLETED TREATMENT CYCLE NUMBER: 5
     Route: 041
     Dates: start: 20141217, end: 20150318
  2. CHLOR-TRIMETON [Concomitant]
     Active Substance: CHLORPHENIRAMINE MALEATE
     Indication: MALIGNANT PERITONEAL NEOPLASM
     Dosage: DOSE INTERVAL: 3-4 WEEKS
     Route: 041
     Dates: start: 20141217, end: 20150318
  3. ZANTAC [Concomitant]
     Active Substance: RANITIDINE HYDROCHLORIDE
     Indication: MALIGNANT PERITONEAL NEOPLASM
     Dosage: DOSE INTERVAL: 3-4 WEEKS
     Route: 041
     Dates: start: 20141217, end: 20150318
  4. PROEMEND [Concomitant]
     Active Substance: FOSAPREPITANT
     Indication: PROPHYLAXIS OF NAUSEA AND VOMITING
     Route: 041
     Dates: start: 20141217, end: 20150225
  5. GRANISETRON [Concomitant]
     Active Substance: GRANISETRON
     Indication: MALIGNANT PERITONEAL NEOPLASM
     Dosage: DOSE INTERVAL: 3-4 WEEKS
     Route: 041
     Dates: start: 20141217, end: 20150318
  6. AVASTIN [Suspect]
     Active Substance: BEVACIZUMAB
     Indication: OVARIAN CANCER
     Dosage: TREATMENT LINE: 1ST
     Route: 041
     Dates: start: 20150107, end: 20150129
  7. AVASTIN [Suspect]
     Active Substance: BEVACIZUMAB
     Indication: MALIGNANT PERITONEAL NEOPLASM
     Route: 041
     Dates: start: 20150225, end: 20150318
  8. PARAPLATIN [Concomitant]
     Active Substance: CARBOPLATIN
     Indication: MALIGNANT PERITONEAL NEOPLASM
     Dosage: DOSE INTERVAL: 3-4 WEEKS??COMPLETED TREATMENT CYCLE NUMBER: 5
     Route: 041
     Dates: start: 20141217, end: 20150318
  9. EMEND [Concomitant]
     Active Substance: APREPITANT
     Indication: PROPHYLAXIS OF NAUSEA AND VOMITING
     Route: 048
     Dates: start: 20150318
  10. DEXART [Concomitant]
     Active Substance: DEXAMETHASONE SODIUM PHOSPHATE
     Indication: MALIGNANT PERITONEAL NEOPLASM
     Dosage: DOSE INTERVAL: 3-4 WEEKS
     Route: 041
     Dates: start: 20141217, end: 20150318

REACTIONS (4)
  - Acute kidney injury [Recovering/Resolving]
  - Neutrophil count decreased [Recovering/Resolving]
  - Tubulointerstitial nephritis [Recovering/Resolving]
  - Pyrexia [Recovering/Resolving]

NARRATIVE: CASE EVENT DATE: 20150325
